FAERS Safety Report 6260397-7 (Version None)
Quarter: 2009Q3

REPORT INFORMATION
  Report Type: 
  Country: None (occurrence: None)
  Receive Date: 20090708
  Receipt Date: 20090703
  Transmission Date: 20100115
  Serious: Yes (Death, Hospitalization, Other)
  Sender: FDA-Public Use
  Company Number: JP-BAYER-200812011BYL

PATIENT
  Age: 53 Year
  Sex: Female
  Weight: 51 kg

DRUGS (12)
  1. NEXAVAR [Suspect]
     Indication: RENAL CELL CARCINOMA STAGE IV
     Dosage: TOTAL DAILY DOSE: 800 MG  UNIT DOSE: 200 MG
     Route: 048
     Dates: start: 20080521, end: 20080528
  2. NEXAVAR [Suspect]
     Dosage: TOTAL DAILY DOSE: 400 MG  UNIT DOSE: 200 MG
     Route: 048
     Dates: start: 20080609, end: 20080616
  3. NEXAVAR [Suspect]
     Dosage: TOTAL DAILY DOSE: 400 MG  UNIT DOSE: 200 MG
     Route: 048
     Dates: start: 20080707, end: 20080727
  4. NEXAVAR [Suspect]
     Dosage: TOTAL DAILY DOSE: 200 MG  UNIT DOSE: 200 MG
     Route: 048
     Dates: start: 20080908, end: 20090525
  5. NEXAVAR [Suspect]
     Dosage: TOTAL DAILY DOSE: 200 MG  UNIT DOSE: 200 MG
     Route: 048
     Dates: start: 20080807, end: 20080819
  6. OXYCONTIN [Concomitant]
     Indication: CANCER PAIN
     Route: 048
     Dates: start: 20070115
  7. GASTER D [Concomitant]
     Indication: GASTRIC ULCER
     Route: 048
     Dates: start: 20060426
  8. FERROMIA [Concomitant]
     Indication: IRON DEFICIENCY ANAEMIA
     Route: 048
     Dates: start: 20070928
  9. MAGMITT [Concomitant]
     Indication: CONSTIPATION
     Route: 048
     Dates: start: 20060426
  10. MUCOSTA [Concomitant]
     Route: 048
     Dates: start: 20060426
  11. SOLANAX [Concomitant]
     Indication: ANXIETY DISORDER
     Route: 048
     Dates: start: 20070714
  12. ZOMETA [Concomitant]
     Route: 042
     Dates: start: 20060509

REACTIONS (13)
  - ALOPECIA [None]
  - DEATH [None]
  - FEBRILE NEUTROPENIA [None]
  - FEMUR FRACTURE [None]
  - FLUSHING [None]
  - GASTROINTESTINAL HAEMORRHAGE [None]
  - HENOCH-SCHONLEIN PURPURA [None]
  - HYPOPHOSPHATAEMIA [None]
  - JAUNDICE CHOLESTATIC [None]
  - PALMAR-PLANTAR ERYTHRODYSAESTHESIA SYNDROME [None]
  - PLATELET COUNT DECREASED [None]
  - RASH [None]
  - WHITE BLOOD CELL COUNT DECREASED [None]
